FAERS Safety Report 6676444-4 (Version None)
Quarter: 2010Q2

REPORT INFORMATION
  Report Type: 
  Country: None (occurrence: None)
  Receive Date: 20100412
  Receipt Date: 20100402
  Transmission Date: 20101027
  Serious: Yes (Other)
  Sender: FDA-Public Use
  Company Number: PHHY2010US11346

PATIENT
  Sex: Male
  Weight: 27 kg

DRUGS (3)
  1. DIOVAN [Suspect]
     Indication: HYPERTENSION
     Dosage: 160 MG, DAILY
     Route: 048
     Dates: start: 20100218, end: 20100301
  2. DIOVAN HCT [Suspect]
     Dosage: 320/25 MG
  3. KLOMATIN [Concomitant]
     Indication: PANIC DISORDER
     Dosage: 0.5 MG, BID
     Route: 048

REACTIONS (2)
  - DRUG ADMINISTRATION ERROR [None]
  - PANIC ATTACK [None]
